FAERS Safety Report 6998876-7 (Version None)
Quarter: 2010Q3

REPORT INFORMATION
  Report Type: 
  Country: None (occurrence: None)
  Receive Date: 20100920
  Receipt Date: 20100429
  Transmission Date: 20110219
  Serious: No
  Sender: FDA-Public Use
  Company Number: US-ASTRAZENECA-2010SE19578

PATIENT
  Age: 84 Year
  Sex: Male

DRUGS (1)
  1. SEROQUEL [Suspect]
     Route: 048
     Dates: start: 20090901

REACTIONS (7)
  - BALANCE DISORDER [None]
  - CATARACT [None]
  - CONSTIPATION [None]
  - DEMENTIA [None]
  - DYSPHAGIA [None]
  - VISION BLURRED [None]
  - WHEELCHAIR USER [None]
